FAERS Safety Report 7335515-X (Version None)
Quarter: 2011Q1

REPORT INFORMATION
  Report Type: 
  Country: None (occurrence: None)
  Receive Date: 20110307
  Receipt Date: 20110226
  Transmission Date: 20110831
  Serious: Yes (Other)
  Sender: FDA-Public Use
  Company Number: DE-GENZYME-CERZ-1001745

PATIENT

DRUGS (1)
  1. CEREZYME [Suspect]
     Indication: DRUG EXPOSURE DURING PREGNANCY
     Dosage: 4000 U, Q2W
     Dates: start: 19920101

REACTIONS (5)
  - HIP DYSPLASIA [None]
  - HYPOGLYCAEMIA [None]
  - CONGENITAL ANOMALY [None]
  - FOETAL DISTRESS SYNDROME [None]
  - RESPIRATORY DISTRESS [None]
